FAERS Safety Report 5291180-7 (Version None)
Quarter: 2007Q2

REPORT INFORMATION
  Report Type: 
  Country: None (occurrence: None)
  Receive Date: 20070409
  Receipt Date: 20070402
  Transmission Date: 20071010
  Serious: Yes (Hospitalization)
  Sender: FDA-Public Use
  Company Number: JP-ROCHE-490039

PATIENT
  Age: 5 Year
  Sex: Female
  Weight: 15 kg

DRUGS (3)
  1. ROCEPHIN [Suspect]
     Indication: BRONCHITIS
     Route: 041
     Dates: start: 20070312, end: 20070312
  2. UNIDENTIFIED [Concomitant]
     Dosage: DRUG NAME REPORTED AS VEEN-3G
     Route: 042
     Dates: start: 20070312, end: 20070314
  3. SOLU-CORTEF [Concomitant]
     Route: 042
     Dates: start: 20070312, end: 20070314

REACTIONS (2)
  - ASTHMA [None]
  - URTICARIA [None]
